FAERS Safety Report 6925882 (Version 1)
Quarter: 2020Q3

REPORT INFORMATION
  Report Type: Report from Study
  Country: DE (occurrence: DE)
  Receive Date: 20090303
  Receipt Date: 20090303
  Transmission Date: 20201105
  Serious: Yes (Hospitalization)
  Sender: FDA-Public Use
  Company Number: DE-ROCHE-582517

PATIENT
  Age: 67 Year
  Sex: Female
  Weight: 66 kg

DRUGS (5)
  1. TAXOL [Suspect]
     Active Substance: PACLITAXEL
     Indication: BREAST CANCER
     Dosage: DAY 1, EVERY WEEK FOR 10 CYCLES.
     Route: 042
     Dates: start: 20070328, end: 20070529
  2. EPOETIN BETA [Suspect]
     Active Substance: ERYTHROPOIETIN
     Indication: PRODUCT USED FOR UNKNOWN INDICATION
     Dosage: AS PER PROTOCOL, DAY 1 OF FIRST CHEMOTHERAPY CYCLE. TAKEN EVERY 7 DAYS THEREAFTER.
     Route: 065
  3. CYCLOPHOSPHAMIDE\EPIRUBICIN [Suspect]
     Active Substance: CYCLOPHOSPHAMIDE\EPIRUBICIN
     Indication: BREAST CANCER
     Dosage: EPIRUBICIN (112.5 MG/M2) AND CYCLOPHOSPHAMIDE (600MG/M2), DAY 1, EVERY 2 WEEKS FOR 4 CYCLES.
     Route: 042
     Dates: start: 20070131, end: 20070314
  4. CAPECITABINE. [Suspect]
     Active Substance: CAPECITABINE
     Indication: BREAST CANCER
     Dosage: TWO DAILY DOSES (1000 MG/M2), DAYS 1?14, EVERY 3 WEEKS FOR 4 CYCLES
     Route: 048
     Dates: start: 20070328, end: 20070612
  5. IBANDRONIC ACID. [Suspect]
     Active Substance: IBANDRONIC ACID
     Indication: BREAST CANCER
     Dosage: FOR DURATION OF 2 YEARS
     Route: 048
     Dates: start: 20070809

REACTIONS (1)
  - Colon cancer [Recovered/Resolved]

NARRATIVE: CASE EVENT DATE: 20080605
